FAERS Safety Report 6432249-0 (Version None)
Quarter: 2009Q4

REPORT INFORMATION
  Report Type: 
  Country: None (occurrence: None)
  Receive Date: 20091109
  Receipt Date: 20091027
  Transmission Date: 20100525
  Serious: Yes (Hospitalization, Disabling)
  Sender: FDA-Public Use
  Company Number: JP-AMGEN-US336720

PATIENT
  Sex: Male
  Weight: 70 kg

DRUGS (5)
  1. ENBREL [Suspect]
     Indication: RHEUMATOID ARTHRITIS
     Dosage: INJECTION; 25 MG 2 X PER 1 WEEK
     Route: 058
     Dates: start: 20050623
  2. ALFAROL [Concomitant]
     Route: 048
     Dates: start: 20030807
  3. PREDONINE [Concomitant]
     Dosage: 2-3 MG
     Route: 048
     Dates: start: 20030807
  4. RHEUMATREX [Concomitant]
     Dosage: 2-3 TABLETS/WEEK
     Route: 048
     Dates: start: 20030807
  5. VOLTAREN [Concomitant]
     Route: 048
     Dates: start: 20030807

REACTIONS (4)
  - ANTINEUTROPHIL CYTOPLASMIC ANTIBODY POSITIVE [None]
  - CHOLECYSTITIS [None]
  - MESANGIOPROLIFERATIVE GLOMERULONEPHRITIS [None]
  - SYSTEMIC LUPUS ERYTHEMATOSUS [None]
